FAERS Safety Report 9450211 (Version 1)
Quarter: 2013Q3

REPORT INFORMATION
  Report Type: Spontaneous
  Country: US (occurrence: US)
  Receive Date: 20130809
  Receipt Date: 20130809
  Transmission Date: 20140515
  Serious: No
  Sender: FDA-Public Use
  Company Number: US-PFIZER INC-2013228315

PATIENT
  Age: 20 Year
  Sex: Female

DRUGS (1)
  1. DEPO-PROVERA [Suspect]
     Indication: CONTRACEPTION
     Dosage: UNK
     Dates: start: 2010, end: 201211

REACTIONS (10)
  - Alopecia [Unknown]
  - Menstruation irregular [Unknown]
  - Metrorrhagia [Unknown]
  - Abdominal pain [Unknown]
  - Abdominal discomfort [Unknown]
  - Weight increased [Unknown]
  - Dizziness [Unknown]
  - Headache [Unknown]
  - Nervousness [Unknown]
  - Libido decreased [Unknown]
